FAERS Safety Report 18020368 (Version 1)
Quarter: 2020Q3

REPORT INFORMATION
  Report Type: Spontaneous
  Country: FR (occurrence: FR)
  Receive Date: 20200714
  Receipt Date: 20200714
  Transmission Date: 20201103
  Serious: Yes (Death)
  Sender: FDA-Public Use
  Company Number: FR-PFIZER INC-2020265523

PATIENT
  Age: 48 Year
  Sex: Female

DRUGS (2)
  1. VENLAFAXINE HCL [Suspect]
     Active Substance: VENLAFAXINE HYDROCHLORIDE
     Dosage: 1 DF, AS NEEDED
     Dates: start: 2019
  2. BROMAZEPAM [Suspect]
     Active Substance: BROMAZEPAM
     Dosage: 1 DF, AS NEEDED
     Dates: start: 2019, end: 2019

REACTIONS (1)
  - Death [Fatal]

NARRATIVE: CASE EVENT DATE: 2019
